FAERS Safety Report 14140013 (Version 1)
Quarter: 2017Q4

REPORT INFORMATION
  Report Type: Spontaneous
  Country: IL (occurrence: IL)
  Receive Date: 20171030
  Receipt Date: 20171030
  Transmission Date: 20180321
  Serious: Yes (Life-Threatening, Hospitalization)
  Sender: FDA-Public Use
  Company Number: IL-ROCHE-2014127

PATIENT
  Age: 38 Year
  Sex: Male

DRUGS (5)
  1. DOXORUBICIN [Suspect]
     Active Substance: DOXORUBICIN
     Indication: B-CELL LYMPHOMA STAGE IV
     Route: 065
     Dates: start: 201709, end: 201710
  2. PREDNISONE. [Suspect]
     Active Substance: PREDNISONE
     Indication: B-CELL LYMPHOMA STAGE IV
     Route: 065
     Dates: start: 201709, end: 201710
  3. CYCLOPHOSPHAMID [Suspect]
     Active Substance: CYCLOPHOSPHAMIDE
     Indication: B-CELL LYMPHOMA STAGE IV
     Route: 065
     Dates: start: 201709, end: 201710
  4. MABTHERA [Suspect]
     Active Substance: RITUXIMAB
     Indication: B-CELL LYMPHOMA STAGE IV
     Route: 065
     Dates: start: 201607, end: 201710
  5. VINCRISTINE [Suspect]
     Active Substance: VINCRISTINE
     Indication: B-CELL LYMPHOMA STAGE IV
     Route: 065
     Dates: start: 201709, end: 201710

REACTIONS (3)
  - Drug ineffective [Unknown]
  - Splenic rupture [Unknown]
  - Neutropenia [Not Recovered/Not Resolved]
